FAERS Safety Report 8071924-1 (Version None)
Quarter: 2012Q1

REPORT INFORMATION
  Report Type: 
  Country: None (occurrence: None)
  Receive Date: 20120119
  Receipt Date: 20111213
  Transmission Date: 20120608
  Serious: Yes (Other)
  Sender: FDA-Public Use
  Company Number: COL_10529-2011

PATIENT
  Age: 82 Year
  Sex: Male

DRUGS (2)
  1. THYROXIN [Concomitant]
  2. DURAPHAT 2800 PPM FLUORIDE TOOTHPASTE [Suspect]
     Indication: DENTAL CARIES
     Dosage: ORAL
     Route: 048

REACTIONS (2)
  - THYROIDITIS [None]
  - DYSPHAGIA [None]
